FAERS Safety Report 21150962 (Version 3)
Quarter: 2022Q3

REPORT INFORMATION
  Report Type: Report from Study
  Country: US (occurrence: US)
  Receive Date: 20220729
  Receipt Date: 20220930
  Transmission Date: 20221027
  Serious: Yes (Other)
  Sender: FDA-Public Use
  Company Number: US-ABBVIE-22K-163-4486747-00

PATIENT
  Sex: Female

DRUGS (5)
  1. RINVOQ [Suspect]
     Active Substance: UPADACITINIB
     Indication: Rheumatoid arthritis
     Route: 048
  2. RINVOQ [Suspect]
     Active Substance: UPADACITINIB
     Indication: Rheumatoid arthritis
     Route: 048
  3. PFIZER-BIONTECH COVID-19 VACCINE [Concomitant]
     Active Substance: TOZINAMERAN
     Indication: COVID-19 immunisation
     Dosage: TIME INTERVAL: 1 TOTAL: ONE IN ONCE?1ST DOSE
     Route: 030
     Dates: start: 20200420, end: 20200420
  4. PFIZER-BIONTECH COVID-19 VACCINE [Concomitant]
     Active Substance: TOZINAMERAN
     Indication: COVID-19 immunisation
     Dosage: TIME INTERVAL: 1 TOTAL: ONE IN ONCE?2ND DOSE
     Route: 030
     Dates: start: 20200520, end: 20200520
  5. PFIZER-BIONTECH COVID-19 VACCINE [Concomitant]
     Active Substance: TOZINAMERAN
     Indication: COVID-19 immunisation
     Dosage: TIME INTERVAL: 1 TOTAL: ONE IN ONCE ?BOOSTER DOSE
     Route: 030
     Dates: start: 20211014, end: 20211014

REACTIONS (6)
  - Intracardiac thrombus [Recovering/Resolving]
  - Pulmonary thrombosis [Recovering/Resolving]
  - Nasopharyngitis [Recovering/Resolving]
  - Thrombosis [Recovering/Resolving]
  - Gastric disorder [Recovering/Resolving]
  - Asthenia [Recovering/Resolving]
